FAERS Safety Report 17335042 (Version 2)
Quarter: 2020Q1

REPORT INFORMATION
  Report Type: Report from Study
  Country: ES (occurrence: ES)
  Receive Date: 20200128
  Receipt Date: 20200131
  Transmission Date: 20200409
  Serious: Yes (Hospitalization)
  Sender: FDA-Public Use
  Company Number: ES-TAIHO ONCOLOGY  INC-IM-2019-00743

PATIENT
  Age: 71 Year
  Sex: Male
  Weight: 75 kg

DRUGS (13)
  1. LONSURF [Suspect]
     Active Substance: TIPIRACIL HYDROCHLORIDE\TRIFLURIDINE
     Dosage: 60 MG (35 MG/M2) BID,ON DAYS 1-5 AND 8-12 OF EACH 28-DAY CYCLE
     Route: 048
     Dates: start: 20191210, end: 20191214
  2. BEVACIZUMAB. [Suspect]
     Active Substance: BEVACIZUMAB
     Dosage: 375 MG (5 MG/KG), IV, ON DAY 1 AND 15 OF EACH 28- DAY CYCLE
     Route: 042
     Dates: start: 20190906, end: 20191119
  3. OMEPRAZOLE. [Concomitant]
     Active Substance: OMEPRAZOLE
     Indication: GASTROOESOPHAGEAL REFLUX PROPHYLAXIS
     Dosage: 20 MG, QD
     Route: 048
     Dates: start: 20180503
  4. HYDROCHLOROTHIAZIDE. [Concomitant]
     Active Substance: HYDROCHLOROTHIAZIDE
     Indication: HYPERTENSION
     Dosage: 12.5 MG, QD
     Route: 048
  5. LISINOPRIL. [Concomitant]
     Active Substance: LISINOPRIL
     Indication: HYPERTENSION
     Dosage: 20 MG, QD
     Route: 048
  6. METAMIZOLE [Concomitant]
     Active Substance: METAMIZOLE
     Indication: PAIN PROPHYLAXIS
     Dosage: 575 MG, TID
     Route: 048
  7. METOCLOPRAMIDE. [Concomitant]
     Active Substance: METOCLOPRAMIDE
     Indication: NAUSEA
     Dosage: 10 MG, QD
     Route: 048
     Dates: start: 20190709
  8. BEVACIZUMAB. [Suspect]
     Active Substance: BEVACIZUMAB
     Indication: ADENOCARCINOMA OF COLON
     Dosage: 375 MG (5 MG/KG), IV, ON DAY 1 AND 15 OF EACH 28- DAY CYCLE
     Route: 042
     Dates: start: 20190709
  9. DILTIAZEM HYDROCHLORIDE. [Concomitant]
     Active Substance: DILTIAZEM HYDROCHLORIDE
     Indication: HYPERTENSION
     Dosage: 12.5 MG, QD
     Route: 048
  10. LONSURF [Suspect]
     Active Substance: TIPIRACIL HYDROCHLORIDE\TRIFLURIDINE
     Indication: ADENOCARCINOMA OF COLON
     Dosage: 60 MG (35 MG/M2) BID,ON DAYS 1-5 AND 8-12 OF EACH 28-DAY CYCLE
     Route: 048
     Dates: start: 20190709
  11. LONSURF [Suspect]
     Active Substance: TIPIRACIL HYDROCHLORIDE\TRIFLURIDINE
     Dosage: 60 MG (35 MG/M2) BID,ON DAYS 1-5 AND 8-12 OF EACH 28-DAY CYCLE
     Route: 048
     Dates: start: 20190906
  12. BEVACIZUMAB. [Suspect]
     Active Substance: BEVACIZUMAB
     Dosage: 365MG (5 MG/KG), IV, ON DAY 1 AND 15 OF EACH 28- DAY CYCLE
     Route: 042
     Dates: start: 20191210
  13. PARACETAMOL [Concomitant]
     Active Substance: ACETAMINOPHEN
     Indication: PAIN PROPHYLAXIS
     Dosage: 1 G, TID
     Route: 048

REACTIONS (1)
  - Campylobacter gastroenteritis [Recovered/Resolved]

NARRATIVE: CASE EVENT DATE: 20191218
